FAERS Safety Report 15414168 (Version 1)
Quarter: 2018Q3

REPORT INFORMATION
  Report Type: Report from Study
  Country: CA (occurrence: CA)
  Receive Date: 20180921
  Receipt Date: 20180921
  Transmission Date: 20181010
  Serious: Yes (Hospitalization, Other)
  Sender: FDA-Public Use
  Company Number: CA-BRISTOL-MYERS SQUIBB COMPANY-BMS-2017-024187

PATIENT
  Age: 79 Year
  Sex: Female

DRUGS (1)
  1. ABATACEPT [Suspect]
     Active Substance: ABATACEPT
     Indication: RHEUMATOID ARTHRITIS
     Dosage: 750 MG, Q4WK
     Route: 042
     Dates: start: 20140130

REACTIONS (10)
  - Confusional state [Unknown]
  - Pleural effusion [Unknown]
  - Anxiety [Unknown]
  - Pneumonia [Not Recovered/Not Resolved]
  - Respiratory disorder [Recovered/Resolved]
  - Urinary tract infection [Unknown]
  - Adverse event [Unknown]
  - Asthenia [Unknown]
  - Blood pressure increased [Unknown]
  - Irritable bowel syndrome [Recovered/Resolved]

NARRATIVE: CASE EVENT DATE: 20180827
